FAERS Safety Report 9802254 (Version 1)
Quarter: 2014Q1

REPORT INFORMATION
  Report Type: Spontaneous
  Country: CA (occurrence: CA)
  Receive Date: 20140107
  Receipt Date: 20140107
  Transmission Date: 20141002
  Serious: Yes (Other)
  Sender: FDA-Public Use
  Company Number: CA-B.I. PHARMACEUTICALS,INC./RIDGEFIELD-2014-BI-00483CN

PATIENT
  Age: 83 Year
  Sex: Male

DRUGS (4)
  1. SPIRIVA [Suspect]
     Dosage: 1 ANZ
     Route: 048
  2. ALTACE [Concomitant]
     Dosage: 5 MG
     Route: 048
  3. LEVAQUIN [Concomitant]
     Dosage: 500 MG
     Route: 048
  4. LIPITOR [Concomitant]
     Route: 048

REACTIONS (1)
  - Hypotension [Unknown]
